FAERS Safety Report 6286057-4 (Version None)
Quarter: 2009Q3

REPORT INFORMATION
  Report Type: 
  Country: None (occurrence: None)
  Receive Date: 20090728
  Receipt Date: 20090713
  Transmission Date: 20100115
  Serious: Yes (Hospitalization)
  Sender: FDA-Public Use
  Company Number: US-RB-018407-09

PATIENT
  Age: 78 Year
  Sex: Female

DRUGS (1)
  1. MUCINEX [Suspect]
     Indication: EMPHYSEMA
     Route: 048

REACTIONS (2)
  - ABDOMINAL PAIN UPPER [None]
  - INSOMNIA [None]
